FAERS Safety Report 6593129-3 (Version None)
Quarter: 2010Q1

REPORT INFORMATION
  Report Type: 
  Country: None (occurrence: None)
  Receive Date: 20100212
  Receipt Date: 20100128
  Transmission Date: 20100710
  Serious: Yes (Hospitalization)
  Sender: FDA-Public Use
  Company Number: CH-1180631

PATIENT
  Age: 6 Year
  Sex: Male

DRUGS (1)
  1. CYCLOGYL (CYCLOPENTOLATE HYDROCHLORIDE) 1% OPHTHALMIC SOLUTION EYE DRO [Suspect]
     Indication: CATARACT CONGENITAL
     Dosage: 6 GTT 1X  OPHTHALMIC
     Route: 047
     Dates: start: 20091210, end: 20091210

REACTIONS (3)
  - BLOOD PRESSURE DIASTOLIC DECREASED [None]
  - BRADYCARDIA [None]
  - SOMNOLENCE [None]
